FAERS Safety Report 4498617-1 (Version None)
Quarter: 2004Q4

REPORT INFORMATION
  Report Type: 
  Country: None (occurrence: None)
  Receive Date: 20041111
  Receipt Date: 20041021
  Transmission Date: 20050328
  Serious: Yes (Death)
  Sender: FDA-Public Use
  Company Number: GB-JNJFOC-20041007507

PATIENT
  Age: 68 Year

DRUGS (2)
  1. INFLIXIMAB [Suspect]
     Indication: RHEUMATOID ARTHRITIS
     Route: 042
  2. LEFLUNOMIDE [Concomitant]

REACTIONS (5)
  - ALVEOLITIS FIBROSING [None]
  - HYPERPLASIA [None]
  - INFLAMMATION [None]
  - LUNG DISORDER [None]
  - PULMONARY ALVEOLAR HAEMORRHAGE [None]
